FAERS Safety Report 10641473 (Version 2)
Quarter: 2015Q1

REPORT INFORMATION
  Report Type: Spontaneous
  Country: US (occurrence: US)
  Receive Date: 20141209
  Receipt Date: 20150113
  Transmission Date: 20150720
  Serious: Yes (Hospitalization, Other)
  Sender: FDA-Public Use
  Company Number: US-GLAXOSMITHKLINE-US2014GSK032724

PATIENT
  Age: 62 Year
  Sex: Male
  Weight: 77.9 kg

DRUGS (4)
  1. VOTRIENT [Suspect]
     Active Substance: PAZOPANIB HYDROCHLORIDE
     Indication: THYROID CANCER METASTATIC
     Dosage: 200MG IN THE MORNING AND 400MG AT NIGHT
     Route: 048
     Dates: start: 20141023, end: 20141104
  2. LEVAQUIN [Concomitant]
     Active Substance: LEVOFLOXACIN
     Indication: TOOTH ABSCESS
     Dosage: UNK, U
     Dates: start: 201411, end: 201411
  3. VOTRIENT [Suspect]
     Active Substance: PAZOPANIB HYDROCHLORIDE
     Dosage: 400 MG, SINGLE IN PM
     Route: 048
     Dates: start: 20141118, end: 20141118
  4. LISINOPRIL. [Concomitant]
     Active Substance: LISINOPRIL

REACTIONS (8)
  - Anaemia [Unknown]
  - Jaundice [Unknown]
  - Tooth abscess [Recovered/Resolved]
  - Blood lactate dehydrogenase increased [Not Recovered/Not Resolved]
  - Haemolysis [Unknown]
  - Autoimmune hepatitis [Unknown]
  - Liver function test abnormal [Unknown]
  - Fatigue [Unknown]

NARRATIVE: CASE EVENT DATE: 20141103
